FAERS Safety Report 22192637 (Version 1)
Quarter: 2023Q2

REPORT INFORMATION
  Report Type: Spontaneous
  Country: US (occurrence: None)
  Receive Date: 20230410
  Receipt Date: 20230410
  Transmission Date: 20230721
  Serious: No
  Sender: FDA-Public Use
  Company Number: None

PATIENT
  Sex: Female

DRUGS (1)
  1. ENTYVIO [Suspect]
     Active Substance: VEDOLIZUMAB
     Indication: Inflammatory bowel disease
     Dosage: OTHER FREQUENCY : EVERY8WEEKS;?
     Route: 042
     Dates: start: 20220831

REACTIONS (7)
  - Condition aggravated [None]
  - Inflammatory bowel disease [None]
  - Colitis [None]
  - Malabsorption [None]
  - Dizziness [None]
  - Pain [None]
  - Drug ineffective [None]
